FAERS Safety Report 21157666 (Version 3)
Quarter: 2022Q3

REPORT INFORMATION
  Report Type: Report from Study
  Country: US (occurrence: US)
  Receive Date: 20220801
  Receipt Date: 20220825
  Transmission Date: 20221027
  Serious: Yes (Death, Hospitalization, Other)
  Sender: FDA-Public Use
  Company Number: US-HORIZON THERAPEUTICS-HZN-2022-004129

PATIENT

DRUGS (4)
  1. KRYSTEXXA [Suspect]
     Active Substance: PEGLOTICASE
     Indication: Gouty tophus
     Dosage: FIRST INFUSION
     Route: 042
     Dates: start: 20220531
  2. KRYSTEXXA [Suspect]
     Active Substance: PEGLOTICASE
     Dosage: INFUSION
     Route: 042
     Dates: start: 20220726
  3. COLCHICINE [Concomitant]
     Active Substance: COLCHICINE
  4. PREDNISONE [Concomitant]
     Active Substance: PREDNISONE

REACTIONS (5)
  - Fall [Fatal]
  - Unresponsive to stimuli [Recovering/Resolving]
  - Transient ischaemic attack [Recovering/Resolving]
  - Renal impairment [Recovering/Resolving]
  - Confusional state [Unknown]

NARRATIVE: CASE EVENT DATE: 20220601
